FAERS Safety Report 7744112-3 (Version None)
Quarter: 2011Q3

REPORT INFORMATION
  Report Type: 
  Country: None (occurrence: None)
  Receive Date: 20110912
  Receipt Date: 20110901
  Transmission Date: 20111222
  Serious: Yes (Hospitalization)
  Sender: FDA-Public Use
  Company Number: PH-JNJFOC-20110810961

PATIENT
  Sex: Female
  Weight: 78 kg

DRUGS (10)
  1. GOLIMUMAB [Suspect]
     Route: 058
     Dates: start: 20101029
  2. PREDNISONE [Concomitant]
     Route: 048
     Dates: start: 20060508
  3. GOLIMUMAB [Suspect]
     Indication: RHEUMATOID ARTHRITIS
     Route: 058
     Dates: start: 20060911
  4. GOLIMUMAB [Suspect]
     Route: 058
     Dates: start: 20110222
  5. DESOGESTREL AND ETHINYL ESTRADIOL [Concomitant]
     Route: 048
     Dates: start: 20070508
  6. METHOTREXATE [Suspect]
     Indication: RHEUMATOID ARTHRITIS
     Route: 048
     Dates: start: 20060916, end: 20080524
  7. FOLIC ACID [Concomitant]
     Route: 048
     Dates: start: 20060814
  8. METHOTREXATE [Concomitant]
     Route: 048
     Dates: start: 20100408
  9. METHOTREXATE [Concomitant]
     Route: 048
     Dates: start: 20090810, end: 20100322
  10. METHOTREXATE [Concomitant]
     Route: 048
     Dates: start: 20080815, end: 20090731

REACTIONS (1)
  - VAGINAL HAEMORRHAGE [None]
